FAERS Safety Report 17607900 (Version 2)
Quarter: 2021Q3

REPORT INFORMATION
  Report Type: Spontaneous
  Country: PT (occurrence: PT)
  Receive Date: 20200401
  Receipt Date: 20210812
  Transmission Date: 20211014
  Serious: Yes (Other)
  Sender: FDA-Public Use
  Company Number: PT-AUROBINDO-AUR-APL-2020-015521

PATIENT
  Age: 46 Year
  Sex: Female

DRUGS (1)
  1. NAPROXEN. [Suspect]
     Active Substance: NAPROXEN
     Indication: MIGRAINE
     Dosage: UNK
     Route: 048

REACTIONS (7)
  - Burning sensation [Recovered/Resolved]
  - Tongue ulceration [Recovered/Resolved]
  - Epidermal necrosis [Recovered/Resolved]
  - Fixed eruption [Recovered/Resolved]
  - Dermatitis bullous [Recovered/Resolved]
  - Tongue eruption [Recovered/Resolved]
  - Tongue blistering [Recovered/Resolved]
